FAERS Safety Report 13410409 (Version 2)
Quarter: 2024Q1

REPORT INFORMATION
  Report Type: Spontaneous
  Country: US (occurrence: US)
  Receive Date: 20170406
  Receipt Date: 20240226
  Transmission Date: 20240409
  Serious: No
  Sender: FDA-Public Use
  Company Number: US-JNJFOC-20170306749

PATIENT
  Age: 12 Year
  Sex: Male

DRUGS (5)
  1. RISPERDAL [Suspect]
     Active Substance: RISPERIDONE
     Indication: Hallucinations, mixed
     Route: 048
     Dates: start: 20051118
  2. RISPERDAL [Suspect]
     Active Substance: RISPERIDONE
     Dosage: 2 MG EVERY MORNING, 0.5 MG AFTERNOON, 1 MG AT 2 PM AND 1.5 MG AT NIGHTTIME
     Route: 048
     Dates: start: 20051230
  3. RISPERDAL [Suspect]
     Active Substance: RISPERIDONE
     Dosage: 2 MG EVERY MORNING, 0.5 MG AFTERNOON, 1 MG AT 2 PM AND 1.5 MG AT NIGHTTIME
     Route: 048
     Dates: start: 20060316
  4. RISPERDAL [Suspect]
     Active Substance: RISPERIDONE
     Dosage: 0.5 MG  UP TO 1 MG PER DAY IN ADDITION
     Route: 048
     Dates: start: 20060420
  5. INVEGA [Suspect]
     Active Substance: PALIPERIDONE
     Indication: Product used for unknown indication
     Route: 048

REACTIONS (3)
  - Tension [Unknown]
  - Therapeutic response decreased [Unknown]
  - Off label use [Unknown]

NARRATIVE: CASE EVENT DATE: 20051101
